FAERS Safety Report 12059434 (Version 2)
Quarter: 2016Q1

REPORT INFORMATION
  Report Type: Spontaneous
  Country: ME (occurrence: ME)
  Receive Date: 20160210
  Receipt Date: 20160223
  Transmission Date: 20160526
  Serious: Yes (Other)
  Sender: FDA-Public Use
  Company Number: ME-ACTAVIS-2016-02213

PATIENT
  Age: 63 Year
  Sex: Male
  Weight: 77 kg

DRUGS (6)
  1. CARBOPLASIN [Suspect]
     Active Substance: CARBOPLATIN
     Indication: LARYNGEAL CANCER METASTATIC
     Dosage: 450 MG, DAILY
     Route: 042
     Dates: start: 20151214, end: 20151214
  2. LETROX [Concomitant]
     Active Substance: LEVOTHYROXINE SODIUM
     Indication: HYPOTHYROIDISM
     Dosage: 100 MG, DAILY
     Route: 065
  3. VIVACE                             /00885601/ [Concomitant]
     Indication: HYPERTENSION
     Dosage: 2.5 MG, DAILY
     Route: 048
  4. SINTROM [Concomitant]
     Active Substance: ACENOCOUMAROL
     Indication: VENA CAVA THROMBOSIS
     Dosage: 1/2, 1/2 1/4
     Route: 048
  5. CONCOR [Concomitant]
     Active Substance: BISOPROLOL FUMARATE
     Indication: HYPERTENSION
     Dosage: 1.25 MG, DAILY
     Route: 048
  6. SINTROM [Concomitant]
     Active Substance: ACENOCOUMAROL
     Indication: ATRIAL FIBRILLATION

REACTIONS (1)
  - Thrombocytopenia [Recovered/Resolved]

NARRATIVE: CASE EVENT DATE: 20160104
